FAERS Safety Report 13526276 (Version 1)
Quarter: 2017Q2

REPORT INFORMATION
  Report Type: Spontaneous
  Country: US (occurrence: US)
  Receive Date: 20170508
  Receipt Date: 20170508
  Transmission Date: 20170830
  Serious: Yes (Hospitalization)
  Sender: FDA-Public Use
  Company Number: None

PATIENT
  Age: 68 Year
  Sex: Female
  Weight: 103.5 kg

DRUGS (1)
  1. MYRBETRIQ [Suspect]
     Active Substance: MIRABEGRON
     Indication: POLLAKIURIA
     Route: 048
     Dates: start: 20170503, end: 20170506

REACTIONS (4)
  - Dyspnoea [None]
  - Fatigue [None]
  - Swelling face [None]
  - Hypertension [None]

NARRATIVE: CASE EVENT DATE: 20170505
